FAERS Safety Report 24911035 (Version 1)
Quarter: 2025Q1

REPORT INFORMATION
  Report Type: Spontaneous
  Country: US (occurrence: US)
  Receive Date: 20250131
  Receipt Date: 20250131
  Transmission Date: 20250408
  Serious: No
  Sender: MERCK
  Company Number: US-009507513-2501USA010764

PATIENT
  Sex: Female
  Weight: 77.1 kg

DRUGS (17)
  1. WINREVAIR [Suspect]
     Active Substance: SOTATERCEPT-CSRK
     Indication: Product used for unknown indication
  2. ORENITRAM [Suspect]
     Active Substance: TREPROSTINIL
     Indication: Pulmonary arterial hypertension
     Dosage: 2.5 MG (1 TABLET OF 2.5 MG), TID, ORAL USE
     Route: 048
     Dates: start: 20241023
  3. METOPROLOL TARTRATE [Concomitant]
     Active Substance: METOPROLOL TARTRATE
  4. FUROSEMIDE [Concomitant]
     Active Substance: FUROSEMIDE
  5. METHOCARBAMOL [Concomitant]
     Active Substance: METHOCARBAMOL
  6. TYLENOL EXTRA STRENGTH [Concomitant]
     Active Substance: ACETAMINOPHEN
  7. FOLIC ACID [Concomitant]
     Active Substance: FOLIC ACID
  8. SILDENAFIL CITRATE [Concomitant]
     Active Substance: SILDENAFIL CITRATE
  9. SERTRALINE HYDROCHLORIDE [Concomitant]
     Active Substance: SERTRALINE HYDROCHLORIDE
  10. MIDODRINE HYDROCHLORIDE [Concomitant]
     Active Substance: MIDODRINE HYDROCHLORIDE
  11. MELATONIN [Concomitant]
     Active Substance: MELATONIN
  12. VITAMIN B-1 [THIAMINE MONONITRATE] [Concomitant]
  13. JARDIANCE [Concomitant]
     Active Substance: EMPAGLIFLOZIN
  14. OPSUMIT [Concomitant]
     Active Substance: MACITENTAN
  15. ENTRESTO [Concomitant]
     Active Substance: SACUBITRIL\VALSARTAN
  16. POTASSIUM CHLORIDE [Concomitant]
     Active Substance: POTASSIUM CHLORIDE
  17. BUMETANIDE [Concomitant]
     Active Substance: BUMETANIDE

REACTIONS (1)
  - Product dose omission issue [Unknown]
